FAERS Safety Report 17652237 (Version 1)
Quarter: 2020Q2

REPORT INFORMATION
  Report Type: Report from Study
  Country: US (occurrence: US)
  Receive Date: 20200409
  Receipt Date: 20200409
  Transmission Date: 20200713
  Serious: Yes (Other)
  Sender: FDA-Public Use
  Company Number: US-PUMA BIOTECHNOLOGY, LTD.-2020US001962

PATIENT

DRUGS (2)
  1. NERLYNX [Suspect]
     Active Substance: NERATINIB
     Indication: BREAST CANCER
     Dosage: 240 MG, DAILY
     Route: 048
     Dates: start: 20200131, end: 2020
  2. NERLYNX [Suspect]
     Active Substance: NERATINIB
     Dosage: UNK
     Route: 048
     Dates: start: 2020, end: 2020

REACTIONS (5)
  - Dizziness [Unknown]
  - Drug intolerance [Unknown]
  - Diarrhoea [Unknown]
  - Hypoaesthesia [Unknown]
  - Diplegia [Unknown]

NARRATIVE: CASE EVENT DATE: 2020
